FAERS Safety Report 17010578 (Version 1)
Quarter: 2019Q4

REPORT INFORMATION
  Report Type: Spontaneous
  Country: US (occurrence: US)
  Receive Date: 20191001
  Receipt Date: 20191001
  Transmission Date: 20200122
  Serious: No
  Sender: FDA-Public Use
  Company Number: None

PATIENT
  Age: 59 Year
  Sex: Female

DRUGS (1)
  1. REPATHA [Suspect]
     Active Substance: EVOLOCUMAB
     Route: 058
     Dates: start: 201904

REACTIONS (4)
  - Insurance issue [None]
  - Contusion [None]
  - Therapy cessation [None]
  - Haematoma [None]

NARRATIVE: CASE EVENT DATE: 20190910
